FAERS Safety Report 8243596-4 (Version None)
Quarter: 2012Q1

REPORT INFORMATION
  Report Type: 
  Country: None (occurrence: None)
  Receive Date: 20120315
  Receipt Date: 20100303
  Transmission Date: 20120608
  Serious: Yes (Hospitalization)
  Sender: FDA-Public Use
  Company Number: PHHY2010US20455

PATIENT
  Sex: Male

DRUGS (1)
  1. FANAPT [Suspect]

REACTIONS (1)
  - OVERDOSE [None]
